FAERS Safety Report 25817454 (Version 2)
Quarter: 2025Q4

REPORT INFORMATION
  Report Type: Spontaneous
  Country: EU (occurrence: EU)
  Receive Date: 20250918
  Receipt Date: 20251008
  Transmission Date: 20260117
  Serious: Yes (Other)
  Sender: AUROBINDO
  Company Number: EU-ABBVIE-6312131

PATIENT
  Age: 56 Year
  Sex: Male

DRUGS (5)
  1. PRAMIPEXOLE [Suspect]
     Active Substance: PRAMIPEXOLE
     Indication: Product used for unknown indication
     Dosage: 1.5 MILLIGRAM
     Route: 065
     Dates: end: 20250828
  2. PRAMIPEXOLE [Suspect]
     Active Substance: PRAMIPEXOLE
     Dosage: 1.5 MILLIGRAM
     Route: 065
     Dates: start: 2025
  3. FOSCARBIDOPA\FOSLEVODOPA [Suspect]
     Active Substance: FOSCARBIDOPA\FOSLEVODOPA
     Indication: Parkinson^s disease
     Dosage: UNK (CRN: 0.27 ML/H, CR: 0.29 ML/H, CRH: 0.31 ML/H, ED: 0.15 ML.)
     Route: 058
     Dates: start: 20240917, end: 202507
  4. FOSCARBIDOPA\FOSLEVODOPA [Suspect]
     Active Substance: FOSCARBIDOPA\FOSLEVODOPA
     Dosage: UNK (CURRENT DOSAGE: CRL: 0.26 ML/H, CR: 0.27 ML/H, CRH: 0.29 ML/H, ED: 0.20 ML)
     Route: 058
     Dates: start: 20250716
  5. ONGENTYS [Concomitant]
     Active Substance: OPICAPONE
     Indication: Parkinson^s disease
     Dosage: 50 MILLIGRAM
     Route: 048

REACTIONS (7)
  - Immobile [Not Recovered/Not Resolved]
  - Infusion site mass [Not Recovered/Not Resolved]
  - Dyskinesia [Not Recovered/Not Resolved]
  - Hypokinesia [Not Recovered/Not Resolved]
  - Somnolence [Not Recovered/Not Resolved]
  - On and off phenomenon [Recovering/Resolving]
  - Therapy cessation [Not Recovered/Not Resolved]

NARRATIVE: CASE EVENT DATE: 20250828
